FAERS Safety Report 5052710-3 (Version None)
Quarter: 2006Q3

REPORT INFORMATION
  Report Type: 
  Country: None (occurrence: None)
  Receive Date: 20060714
  Receipt Date: 20060714
  Transmission Date: 20061208
  Serious: Yes (Hospitalization)
  Sender: FDA-Public Use
  Company Number: None

PATIENT
  Sex: Female
  Weight: 100.9 kg

DRUGS (8)
  1. TAXOL [Suspect]
     Dosage: 150 MG
  2. SYNTHROID [Concomitant]
  3. ATIVAN [Concomitant]
  4. CARDIZEM CD [Concomitant]
  5. DEXAMETHASONE TAB [Concomitant]
  6. PHENERGAN HCL [Concomitant]
  7. PREVACID [Concomitant]
  8. TOPROL-XL [Concomitant]

REACTIONS (1)
  - PULMONARY EMBOLISM [None]
